FAERS Safety Report 10224111 (Version 1)
Quarter: 2014Q2

REPORT INFORMATION
  Report Type: Spontaneous
  Country: DE (occurrence: DE)
  Receive Date: 20140609
  Receipt Date: 20140609
  Transmission Date: 20141212
  Serious: Yes (Death)
  Sender: FDA-Public Use
  Company Number: PHHY2014DE070279

PATIENT
  Age: 24 Year
  Sex: Female

DRUGS (11)
  1. VALPROIC ACID [Suspect]
     Indication: GENERALISED TONIC-CLONIC SEIZURE
  2. LAMOTRIGINE [Suspect]
  3. ACETYLSALICYLIC ACID [Suspect]
  4. AMOXICILLIN [Suspect]
  5. CLINDAMYCIN [Suspect]
  6. METAMIZOLE [Suspect]
  7. PARACETAMOL [Suspect]
  8. METOCLOPRAMIDE [Suspect]
  9. DIMENHYDRINATE [Suspect]
  10. PRIMIDONE [Suspect]
  11. ETILEFRINE [Suspect]

REACTIONS (1)
  - Hepatic failure [Fatal]
